FAERS Safety Report 8996830 (Version 1)
Quarter: 2013Q1

REPORT INFORMATION
  Report Type: Spontaneous
  Country: US (occurrence: US)
  Receive Date: 20130104
  Receipt Date: 20130104
  Transmission Date: 20140127
  Serious: No
  Sender: FDA-Public Use
  Company Number: US-TEVA-375800USA

PATIENT
  Age: 42 Year
  Sex: Female
  Weight: 124.85 kg

DRUGS (1)
  1. PROAIR HFA [Suspect]
     Indication: ASTHMA
     Dosage: 2 PUFFS AS NEEDED
     Dates: end: 20121212

REACTIONS (1)
  - Vomiting [Recovered/Resolved]
